FAERS Safety Report 4846269-0 (Version None)
Quarter: 2005Q4

REPORT INFORMATION
  Report Type: 
  Country: None (occurrence: None)
  Receive Date: 20051206
  Receipt Date: 20050912
  Transmission Date: 20060501
  Serious: Yes (Hospitalization)
  Sender: FDA-Public Use
  Company Number: CH-SANOFI-SYNTHELABO-F01200501859

PATIENT
  Sex: Female

DRUGS (7)
  1. OXALIPLATIN [Suspect]
     Indication: COLORECTAL CANCER METASTATIC
     Dosage: 220 MG
     Route: 042
     Dates: start: 20050829, end: 20050829
  2. CAPECITABINE [Suspect]
     Dosage: 2 X 1000 MG/M2 PER DAY OF DAYS 1-15, Q3W
     Route: 048
     Dates: start: 20050829, end: 20050907
  3. TRAMAL [Concomitant]
     Route: 048
     Dates: start: 20050810, end: 20050902
  4. ASPIRIN [Concomitant]
     Route: 048
  5. TEMESTA [Concomitant]
     Dates: end: 20050902
  6. MORPHINE [Concomitant]
     Dosage: 2%
     Route: 048
     Dates: start: 20050907
  7. HALDOL [Concomitant]
     Route: 048
     Dates: start: 20050907

REACTIONS (6)
  - CARDIAC ARREST [None]
  - CARDIOVASCULAR DISORDER [None]
  - COLITIS ISCHAEMIC [None]
  - DIARRHOEA HAEMORRHAGIC [None]
  - MESENTERIC OCCLUSION [None]
  - NAUSEA [None]
